FAERS Safety Report 5056649-9 (Version None)
Quarter: 2006Q2

REPORT INFORMATION
  Report Type: 
  Country: None (occurrence: None)
  Receive Date: 20060616
  Receipt Date: 20060427
  Transmission Date: 20061013
  Serious: No
  Sender: FDA-Public Use
  Company Number: 2006US000938

PATIENT
  Age: 73 Year
  Sex: Female

DRUGS (6)
  1. VESICARE [Suspect]
     Indication: INCONTINENCE
     Dosage: 5 MG, ORAL
     Route: 048
     Dates: start: 20051001, end: 20060301
  2. BETAPACE [Concomitant]
  3. CITALOPRAM HYDROBROMIDE [Concomitant]
  4. COUMADIN [Concomitant]
  5. FISH OIL (FISH OIL) [Concomitant]
  6. YEAST (RED RICE) (YEAST) [Concomitant]

REACTIONS (1)
  - URINARY TRACT INFECTION [None]
